FAERS Safety Report 14225776 (Version 1)
Quarter: 2017Q4

REPORT INFORMATION
  Report Type: Spontaneous
  Country: US (occurrence: US)
  Receive Date: 20171127
  Receipt Date: 20171127
  Transmission Date: 20180321
  Serious: No
  Sender: FDA-Public Use
  Company Number: US-JNJFOC-20171124143

PATIENT
  Sex: Male

DRUGS (5)
  1. TRAMADOL HYDROCHLORIDE. [Suspect]
     Active Substance: TRAMADOL HYDROCHLORIDE
     Indication: PAIN
     Dosage: 10 MG TABLET 1-2 TABLETS EVERY 4 HOURS (PATIENT NORMALLY TOOK ONLY ONE TABLET AT A TIME)
     Route: 048
  2. TRAMADOL HYDROCHLORIDE. [Suspect]
     Active Substance: TRAMADOL HYDROCHLORIDE
     Indication: PAIN
     Dosage: 10 MG TABLET 1-2 TABLETS EVERY 4 HOURS (PATIENT NORMALLY TOOK ONLY ONE TABLET AT A TIME)
     Route: 048
     Dates: start: 2016
  3. ZOLOFT [Concomitant]
     Active Substance: SERTRALINE HYDROCHLORIDE
     Indication: SPINAL COLUMN STENOSIS
     Route: 048
  4. ZOCOR [Concomitant]
     Active Substance: SIMVASTATIN
     Indication: BLOOD CHOLESTEROL ABNORMAL
     Route: 065
  5. LYRICA [Concomitant]
     Active Substance: PREGABALIN
     Indication: SPINAL PAIN
     Dosage: 150MG ONE CAPSULE IN THE MORNING AND TWO CAPSULES AT NIGHT
     Route: 048
     Dates: start: 2013, end: 201707

REACTIONS (1)
  - Sedation [Unknown]
